FAERS Safety Report 9201345 (Version 2)
Quarter: 2013Q2

REPORT INFORMATION
  Report Type: Spontaneous
  Country: TN (occurrence: TN)
  Receive Date: 20130401
  Receipt Date: 20130521
  Transmission Date: 20140414
  Serious: Yes (Other)
  Sender: FDA-Public Use
  Company Number: TN-BRISTOL-MYERS SQUIBB COMPANY-18707265

PATIENT
  Age: 0 Year
  Sex: Male

DRUGS (1)
  1. BARACLUDE [Suspect]
     Route: 064

REACTIONS (2)
  - Thrombocytopenia [Recovered/Resolved]
  - Jaundice neonatal [Recovered/Resolved]
